FAERS Safety Report 19907483 (Version 2)
Quarter: 2021Q4

REPORT INFORMATION
  Report Type: Spontaneous
  Country: US (occurrence: US)
  Receive Date: 20211001
  Receipt Date: 20211029
  Transmission Date: 20220303
  Serious: Yes (Hospitalization)
  Sender: FDA-Public Use
  Company Number: US-BIOCRYST-2021BCR00416

PATIENT
  Sex: Male
  Weight: 120.18 kg

DRUGS (7)
  1. ORLADEYO [Suspect]
     Active Substance: BEROTRALSTAT HYDROCHLORIDE
     Indication: Hereditary angioedema with normal C1 esterase inhibitor
     Dosage: 150 MG, 1X/DAY
     Route: 048
     Dates: start: 20210303, end: 2021
  2. BENADRYL [Concomitant]
     Active Substance: DIPHENHYDRAMINE HYDROCHLORIDE
  3. PEPCID [Concomitant]
     Active Substance: FAMOTIDINE
  4. ALLEGRA [Concomitant]
     Active Substance: FEXOFENADINE HYDROCHLORIDE
  5. TRANEXAMIC ACID [Concomitant]
     Active Substance: TRANEXAMIC ACID
  6. FLUTICASONE PROPIONATE [Concomitant]
     Active Substance: FLUTICASONE PROPIONATE
  7. FIRAZYR [Concomitant]
     Active Substance: ICATIBANT ACETATE
     Dosage: UNK, AS NEEDED

REACTIONS (6)
  - Pleural effusion [Recovered/Resolved]
  - Atrial fibrillation [Unknown]
  - Leukocytosis [Unknown]
  - Cardiac failure congestive [Unknown]
  - Antineutrophil cytoplasmic antibody positive [Unknown]
  - Antinuclear antibody positive [Unknown]

NARRATIVE: CASE EVENT DATE: 20210101
